FAERS Safety Report 16799696 (Version 1)
Quarter: 2019Q3

REPORT INFORMATION
  Report Type: Spontaneous
  Country: US (occurrence: US)
  Receive Date: 20190912
  Receipt Date: 20190912
  Transmission Date: 20191005
  Serious: No
  Sender: FDA-Public Use
  Company Number: US-SHIRE-US201929625

PATIENT

DRUGS (1)
  1. CUVITRU [Suspect]
     Active Substance: HUMAN IMMUNOGLOBULIN G
     Indication: PRODUCT USED FOR UNKNOWN INDICATION
     Dosage: 20 MILLIGRAM, UNKNOWN
     Route: 050

REACTIONS (4)
  - Feeling abnormal [Unknown]
  - Infusion site bruising [Unknown]
  - Infusion site pain [Unknown]
  - Infusion site extravasation [Unknown]
